FAERS Safety Report 6477510-9 (Version None)
Quarter: 2009Q4

REPORT INFORMATION
  Report Type: 
  Country: None (occurrence: None)
  Receive Date: 20091207
  Receipt Date: 20091127
  Transmission Date: 20100525
  Serious: Yes (Death)
  Sender: FDA-Public Use
  Company Number: GB-AMGEN-US324874

PATIENT
  Age: 53 Year

DRUGS (8)
  1. ENBREL [Suspect]
     Indication: RHEUMATOID ARTHRITIS
     Dosage: 25MG, FREQUENCY UNKNOWN
     Route: 058
     Dates: start: 20040101, end: 20070901
  2. CITALOPRAM HYDROBROMIDE [Concomitant]
     Dosage: 20MG FREQUENCY UNKNOWN
     Route: 048
  3. METHOTREXATE [Concomitant]
     Indication: RHEUMATOID ARTHRITIS
     Dosage: 12.5MG, FREQUENCY UNKNOWN
     Route: 048
     Dates: start: 20051027
  4. FOLIC ACID [Concomitant]
     Dosage: 5MG, FREQUENCY UNKNOWN
     Route: 048
  5. INDOMETHACIN [Concomitant]
     Indication: RHEUMATOID ARTHRITIS
     Route: 048
  6. LANSOPRAZOLE [Concomitant]
     Dosage: 30MG, FREQUENCY UNKNOWN
     Route: 048
  7. ATENOLOL [Concomitant]
     Dosage: 50MG, FREQUENCY UNKNOWN
     Route: 048
  8. FERROUS SULFATE TAB [Concomitant]
     Dosage: 200MG FREQUENCY UNKNOWN

REACTIONS (2)
  - MULTI-ORGAN FAILURE [None]
  - SEPSIS [None]
